FAERS Safety Report 7295815-9 (Version None)
Quarter: 2011Q1

REPORT INFORMATION
  Report Type: 
  Country: None (occurrence: None)
  Receive Date: 20110216
  Receipt Date: 20110207
  Transmission Date: 20110831
  Serious: No
  Sender: FDA-Public Use
  Company Number: US-ABBOTT-11P-163-0704407-00

PATIENT
  Sex: Female
  Weight: 90.8 kg

DRUGS (3)
  1. SIMCOR [Suspect]
     Indication: BLOOD CHOLESTEROL INCREASED
     Dosage: 500/20MG 1 IN 1 D
     Dates: start: 20110101, end: 20110101
  2. METFORMIN HYDROCHLORIDE [Concomitant]
     Indication: DIABETES MELLITUS
     Dates: start: 20110101, end: 20110101
  3. ACTOS [Concomitant]
     Indication: DIABETES MELLITUS
     Dates: start: 20100101

REACTIONS (2)
  - FLUSHING [None]
  - ERYTHEMA [None]
